FAERS Safety Report 6058574-3 (Version None)
Quarter: 2009Q1

REPORT INFORMATION
  Report Type: 
  Country: None (occurrence: None)
  Receive Date: 20090130
  Receipt Date: 20090121
  Transmission Date: 20090719
  Serious: No
  Sender: FDA-Public Use
  Company Number: US-JNJFOC-20090105731

PATIENT
  Sex: Female
  Weight: 52.16 kg

DRUGS (7)
  1. DURAGESIC-100 [Suspect]
     Dosage: USED A 100UG/HR PATCH AND A 50UG/HR PATCH TO MAKE A TOTAL OF 150UG/HR
     Route: 062
  2. DURAGESIC-100 [Suspect]
     Indication: FIBROMYALGIA
     Dosage: USED TWO 75 UG/HR PATCHES TO MAKE A TOTAL OF 150 UG/HR
     Route: 062
  3. WELLBUTRIN SR [Concomitant]
     Indication: DEPRESSION
     Route: 048
  4. KLONOPIN [Concomitant]
     Indication: ANXIETY
     Dosage: 0.5 MG 1 THREE TIMES A DAY AS NEEDED
     Route: 048
  5. AMBIEN [Concomitant]
     Indication: SLEEP DISORDER THERAPY
     Dosage: 1 AT BEDTIME AS NEEDED
     Route: 048
  6. ZERZINE [Concomitant]
     Indication: ANXIETY
     Route: 048
  7. DARVOCET-N 100 [Concomitant]
     Indication: PAIN
     Dosage: 1 TABLET FOUR TIMES A DAY AS NEEDED
     Route: 048

REACTIONS (2)
  - INADEQUATE ANALGESIA [None]
  - INCORRECT DRUG ADMINISTRATION DURATION [None]
